FAERS Safety Report 17024961 (Version 1)
Quarter: 2019Q4

REPORT INFORMATION
  Report Type: Spontaneous
  Country: CN (occurrence: CN)
  Receive Date: 20191113
  Receipt Date: 20191113
  Transmission Date: 20200122
  Serious: Yes (Hospitalization)
  Sender: FDA-Public Use
  Company Number: CN-CORCEPT THERAPEUTICS INC.-CN-2019CRT000963

PATIENT
  Age: 28 Year
  Sex: Female

DRUGS (1)
  1. MIFEPRISTONE [Suspect]
     Active Substance: MIFEPRISTONE
     Indication: CERVICAL DILATATION
     Dosage: 100 MG

REACTIONS (1)
  - Acute generalised exanthematous pustulosis [Recovered/Resolved]
